FAERS Safety Report 9656105 (Version 1)
Quarter: 2013Q4

REPORT INFORMATION
  Report Type: Spontaneous
  Country: US (occurrence: None)
  Receive Date: 20131029
  Receipt Date: 20131029
  Transmission Date: 20140711
  Serious: No
  Sender: FDA-Public Use
  Company Number: None

PATIENT
  Age: 77 Year
  Sex: Female
  Weight: 97.52 kg

DRUGS (14)
  1. AROMASIN [Suspect]
     Indication: BREAST CANCER
     Dosage: 25 MG 1 PILL 1 EVENING MEAL BY MOUTH
     Route: 048
     Dates: start: 201204, end: 20130923
  2. CPAP MACHINE [Concomitant]
  3. LOSARTAN [Concomitant]
  4. DIOGIN [Concomitant]
  5. SYNTHROID [Concomitant]
  6. VIT D [Concomitant]
  7. OMEGO 3 [Concomitant]
  8. LIVER DETOX [Concomitant]
  9. B-12 [Concomitant]
  10. Q10 [Concomitant]
  11. VIT E [Concomitant]
  12. CATRAN C [Concomitant]
  13. ALLERY ALLER -FOX [Concomitant]
  14. LYPORIC ACID [Concomitant]

REACTIONS (13)
  - Arthralgia [None]
  - Swelling [None]
  - Fluid retention [None]
  - Arthritis [None]
  - Constipation [None]
  - Diarrhoea [None]
  - Pain in extremity [None]
  - Local swelling [None]
  - Pain [None]
  - Local swelling [None]
  - Insomnia [None]
  - Local swelling [None]
  - Pain in extremity [None]
